FAERS Safety Report 21002934 (Version 4)
Quarter: 2022Q3

REPORT INFORMATION
  Report Type: Report from Study
  Country: US (occurrence: US)
  Receive Date: 20220624
  Receipt Date: 20220806
  Transmission Date: 20221027
  Serious: Yes (Hospitalization, Other)
  Sender: FDA-Public Use
  Company Number: US-UNITED THERAPEUTICS-UNT-2022-011321

PATIENT
  Sex: Male
  Weight: 89.796 kg

DRUGS (4)
  1. TREPROSTINIL SODIUM [Suspect]
     Active Substance: TREPROSTINIL SODIUM
     Indication: Pulmonary arterial hypertension
     Dosage: 72 ?G, QID
     Dates: start: 202204, end: 202207
  2. TREPROSTINIL SODIUM [Suspect]
     Active Substance: TREPROSTINIL SODIUM
     Dosage: 54 ?G, QID
     Dates: start: 2022, end: 2022
  3. TREPROSTINIL SODIUM [Suspect]
     Active Substance: TREPROSTINIL SODIUM
     Dosage: 66 ?G, QID
     Dates: start: 2022, end: 2022
  4. TREPROSTINIL SODIUM [Suspect]
     Active Substance: TREPROSTINIL SODIUM
     Dosage: 72 ?G, QID
     Dates: start: 202204, end: 202207

REACTIONS (11)
  - Loss of consciousness [Unknown]
  - Hypotension [Recovering/Resolving]
  - Cough [Unknown]
  - Productive cough [Unknown]
  - Sputum discoloured [Unknown]
  - Therapy non-responder [Unknown]
  - Gait disturbance [Unknown]
  - Oxygen consumption increased [Unknown]
  - Oedema peripheral [Unknown]
  - Localised oedema [Unknown]
  - Oedema [Unknown]

NARRATIVE: CASE EVENT DATE: 20220101
